FAERS Safety Report 14114995 (Version 1)
Quarter: 2017Q4

REPORT INFORMATION
  Report Type: Report from Study
  Country: CN (occurrence: CN)
  Receive Date: 20171023
  Receipt Date: 20171023
  Transmission Date: 20180321
  Serious: Yes (Other)
  Sender: FDA-Public Use
  Company Number: CN-MYLANLABS-2017M1065729

PATIENT
  Age: 40 Year
  Sex: Female

DRUGS (4)
  1. METHOTREXATE. [Suspect]
     Active Substance: METHOTREXATE
     Indication: PLACENTA ACCRETA
     Dosage: THRICE
     Route: 030
  2. MIFEPRISTONE [Suspect]
     Active Substance: MIFEPRISTONE
     Indication: PLACENTA ACCRETA
     Dosage: FOR 2-3 DAYS
     Route: 048
  3. HERBAL NOS [Suspect]
     Active Substance: HERBALS
     Indication: PLACENTA ACCRETA
     Route: 048
  4. FOLINIC ACID [Concomitant]
     Active Substance: LEUCOVORIN
     Indication: PRODUCT USED FOR UNKNOWN INDICATION
     Route: 065

REACTIONS (3)
  - Transaminases abnormal [Recovered/Resolved]
  - Postpartum haemorrhage [Recovered/Resolved]
  - Leukopenia [Recovered/Resolved]
